FAERS Safety Report 6151766-4 (Version None)
Quarter: 2009Q2

REPORT INFORMATION
  Report Type: 
  Country: None (occurrence: None)
  Receive Date: 20090410
  Receipt Date: 20090331
  Transmission Date: 20091009
  Serious: Yes (Life-Threatening, Hospitalization)
  Sender: FDA-Public Use
  Company Number: B0567754A

PATIENT
  Sex: Female
  Weight: 0.8 kg

DRUGS (6)
  1. RETROVIR [Suspect]
     Indication: ANTIVIRAL PROPHYLAXIS
     Route: 042
     Dates: start: 20090216, end: 20090313
  2. RETROVIR [Suspect]
     Dates: start: 20090216, end: 20090216
  3. COMBIVIR [Suspect]
  4. KALETRA [Suspect]
  5. CELESTENE [Suspect]
     Dates: start: 20090213, end: 20090214
  6. ENTERAL NUTRITION [Concomitant]
     Dates: start: 20090217

REACTIONS (5)
  - ABDOMINAL DISTENSION [None]
  - DRUG EXPOSURE DURING PREGNANCY [None]
  - FOETAL GROWTH RETARDATION [None]
  - NECROTISING ENTEROCOLITIS NEONATAL [None]
  - PREMATURE BABY [None]
